FAERS Safety Report 5678303-2 (Version None)
Quarter: 2008Q1

REPORT INFORMATION
  Report Type: 
  Country: None (occurrence: None)
  Receive Date: 20080320
  Receipt Date: 20080313
  Transmission Date: 20080703
  Serious: Yes (Other)
  Sender: FDA-Public Use
  Company Number: 2008006404

PATIENT
  Sex: Female

DRUGS (1)
  1. LISTERINE WHITENING QUICK DISSOLVING STRIPS (NO ACTIVE INGREDIENT) [Suspect]
     Dosage: ORAL
     Route: 048

REACTIONS (4)
  - BURNING SENSATION [None]
  - GINGIVAL PAIN [None]
  - OEDEMA MOUTH [None]
  - ORAL PAIN [None]
